FAERS Safety Report 21178231 (Version 1)
Quarter: 2022Q3

REPORT INFORMATION
  Report Type: Spontaneous
  Country: SA (occurrence: SA)
  Receive Date: 20220805
  Receipt Date: 20220805
  Transmission Date: 20221027
  Serious: Yes (Hospitalization, Other)
  Sender: FDA-Public Use
  Company Number: SA-STRIDES ARCOLAB LIMITED-2022SP009816

PATIENT
  Age: 12 Year
  Sex: Male

DRUGS (11)
  1. CARBOPLATIN [Suspect]
     Active Substance: CARBOPLATIN
     Indication: Pineal neoplasm
     Dosage: UNK
     Route: 065
  2. CARBOPLATIN [Suspect]
     Active Substance: CARBOPLATIN
     Indication: Germ cell neoplasm
  3. ETOPOSIDE [Suspect]
     Active Substance: ETOPOSIDE
     Indication: Pineal neoplasm
     Dosage: UNK
     Route: 065
  4. ETOPOSIDE [Suspect]
     Active Substance: ETOPOSIDE
     Indication: Germ cell neoplasm
     Dosage: UNK UNK, CYCLICAL (3RD CYCLE)
     Route: 065
  5. ETOPOSIDE [Suspect]
     Active Substance: ETOPOSIDE
     Dosage: UNK UNK, CYCLICAL (TWO CONSOLIDATION CYCLES)
     Route: 065
  6. THIOTEPA [Suspect]
     Active Substance: THIOTEPA
     Indication: Pineal neoplasm
     Dosage: UNK UNK, CYCLICAL (TWO CONSOLIDATION CYCLES)
     Route: 065
  7. THIOTEPA [Suspect]
     Active Substance: THIOTEPA
     Indication: Germ cell neoplasm
  8. VINBLASTINE [Suspect]
     Active Substance: VINBLASTINE
     Indication: Pineal neoplasm
     Dosage: UNK UNK, CYCLICAL (3RD CYCLE)
     Route: 065
  9. VINBLASTINE [Suspect]
     Active Substance: VINBLASTINE
     Indication: Germ cell neoplasm
  10. BLEOMYCIN [Suspect]
     Active Substance: BLEOMYCIN SULFATE
     Indication: Pineal neoplasm
     Dosage: UNK UNK, CYCLICAL (3RD CYCLE)
     Route: 065
  11. BLEOMYCIN [Suspect]
     Active Substance: BLEOMYCIN SULFATE
     Indication: Germ cell neoplasm

REACTIONS (5)
  - Acute kidney injury [Unknown]
  - Haematotoxicity [Recovered/Resolved]
  - Thrombocytopenia [Recovered/Resolved]
  - Drug ineffective [Unknown]
  - Off label use [Unknown]
